FAERS Safety Report 13891686 (Version 1)
Quarter: 2017Q3

REPORT INFORMATION
  Report Type: Spontaneous
  Country: NL (occurrence: NL)
  Receive Date: 20170822
  Receipt Date: 20170822
  Transmission Date: 20171127
  Serious: Yes (Life-Threatening)
  Sender: FDA-Public Use
  Company Number: PHHY2017NL121764

PATIENT
  Sex: Male

DRUGS (1)
  1. TRAVATAN [Suspect]
     Active Substance: TRAVOPROST
     Indication: PRODUCT USED FOR UNKNOWN INDICATION
     Dosage: 1 GTT, QD
     Route: 047

REACTIONS (13)
  - Abdominal distension [Unknown]
  - Depression [Unknown]
  - Throat irritation [Unknown]
  - Dry skin [Unknown]
  - Skin irritation [Unknown]
  - Dehydration [Unknown]
  - Growth of eyelashes [Unknown]
  - Feeling abnormal [Unknown]
  - Chest discomfort [Unknown]
  - Pyrexia [Unknown]
  - Abdominal discomfort [Unknown]
  - Abnormal sensation in eye [Unknown]
  - Dyspnoea [Unknown]
